FAERS Safety Report 24865073 (Version 2)
Quarter: 2025Q1

REPORT INFORMATION
  Report Type: Report from Study
  Country: GR (occurrence: GR)
  Receive Date: 20250121
  Receipt Date: 20250228
  Transmission Date: 20250408
  Serious: Yes (Death, Other)
  Sender: JOHNSON AND JOHNSON
  Company Number: GR-JNJFOC-20250132174

PATIENT

DRUGS (4)
  1. REMICADE [Suspect]
     Active Substance: INFLIXIMAB
     Indication: Inflammatory bowel disease
     Route: 041
  2. ADALIMUMAB [Suspect]
     Active Substance: ADALIMUMAB
     Indication: Inflammatory bowel disease
     Route: 065
  3. AZATHIOPRINE [Suspect]
     Active Substance: AZATHIOPRINE
     Indication: Inflammatory bowel disease
     Route: 065
  4. METHOTREXATE [Suspect]
     Active Substance: METHOTREXATE
     Indication: Inflammatory bowel disease
     Route: 065

REACTIONS (10)
  - Death [Fatal]
  - Infection [Unknown]
  - Osteonecrosis [Unknown]
  - Non-Hodgkin^s lymphoma [Unknown]
  - Prostate cancer [Unknown]
  - Thyroid cancer [Unknown]
  - Hepatocellular carcinoma [Unknown]
  - Skin cancer [Unknown]
  - Drug ineffective [Unknown]
  - Treatment noncompliance [Unknown]
